FAERS Safety Report 23787813 (Version 1)
Quarter: 2024Q2

REPORT INFORMATION
  Report Type: Spontaneous
  Country: FR (occurrence: FR)
  Receive Date: 20240426
  Receipt Date: 20240426
  Transmission Date: 20240716
  Serious: Yes (Other)
  Sender: FDA-Public Use
  Company Number: None

PATIENT
  Age: 17 Year
  Sex: Female

DRUGS (2)
  1. INFLIXIMAB [Suspect]
     Active Substance: INFLIXIMAB
     Indication: Crohn^s disease
     Dosage: 50 MG, MONTHLY
     Route: 042
     Dates: start: 202304
  2. METHOTREXATE SODIUM [Suspect]
     Active Substance: METHOTREXATE SODIUM
     Indication: Juvenile idiopathic arthritis
     Dosage: 15 MG, WEEKLY
     Route: 048
     Dates: start: 202304, end: 20240101

REACTIONS (1)
  - Punctate keratitis [Not Recovered/Not Resolved]

NARRATIVE: CASE EVENT DATE: 20230901
